FAERS Safety Report 6278471-8 (Version None)
Quarter: 2009Q3

REPORT INFORMATION
  Report Type: 
  Country: None (occurrence: None)
  Receive Date: 20090721
  Receipt Date: 20090707
  Transmission Date: 20100115
  Serious: No
  Sender: FDA-Public Use
  Company Number: 001006

PATIENT
  Sex: Male
  Weight: 78 kg

DRUGS (4)
  1. VIMPAT [Suspect]
     Indication: EPILEPSY
     Dosage: (100 MG BID ORAL)
     Route: 048
     Dates: start: 20090429, end: 20090517
  2. ORFIRIL /00228501/ [Concomitant]
  3. FRISIUM [Concomitant]
  4. RISPERDAL [Concomitant]

REACTIONS (1)
  - DEATH [None]
